FAERS Safety Report 6480892-5 (Version None)
Quarter: 2009Q4

REPORT INFORMATION
  Report Type: 
  Country: None (occurrence: None)
  Receive Date: 20091208
  Receipt Date: 20091124
  Transmission Date: 20100525
  Serious: Yes (Hospitalization)
  Sender: FDA-Public Use
  Company Number: GB-MYLANLABS-2009S1020404

PATIENT
  Sex: Male

DRUGS (7)
  1. CITALOPRAM HYDROBROMIDE [Suspect]
     Indication: DEPRESSION
     Route: 048
     Dates: start: 20070301, end: 20070301
  2. EPILIM [Suspect]
     Indication: DEPRESSION
     Route: 048
  3. EPILIM [Suspect]
     Indication: MOOD SWINGS
     Route: 048
  4. ASPIRIN [Concomitant]
     Indication: CEREBROVASCULAR ACCIDENT
     Route: 048
  5. DIGOXIN [Concomitant]
     Indication: ATRIAL FIBRILLATION
  6. FRUSEMIDE [Concomitant]
     Indication: DRUG USE FOR UNKNOWN INDICATION
  7. RAMIPRIL [Concomitant]
     Indication: BLOOD PRESSURE
     Route: 048

REACTIONS (2)
  - HYPONATRAEMIA [None]
  - MENTAL DISORDER [None]
